FAERS Safety Report 10073856 (Version 3)
Quarter: 2014Q2

REPORT INFORMATION
  Report Type: Report from Study
  Country: GB (occurrence: GB)
  Receive Date: 20140411
  Receipt Date: 20140620
  Transmission Date: 20141212
  Serious: Yes (Hospitalization)
  Sender: FDA-Public Use
  Company Number: GB-009507513-1404GBR006891

PATIENT
  Age: 59 Year
  Sex: Male
  Weight: 86 kg

DRUGS (10)
  1. RIBAVIRIN [Suspect]
     Indication: HEPATITIS C
     Dosage: 1000 MG QD
     Route: 048
     Dates: start: 20131014, end: 20140225
  2. RIBAVIRIN [Suspect]
     Dosage: UNK
     Route: 048
     Dates: start: 20140303
  3. PEGASYS [Suspect]
     Indication: HEPATITIS C
     Dosage: 180 MICROGRAM, QW
     Route: 058
     Dates: start: 20131014, end: 20140225
  4. PEGASYS [Suspect]
     Dosage: UNK
     Route: 058
     Dates: start: 20140303
  5. TELAPREVIR [Suspect]
     Indication: HEPATITIS C
     Dosage: 1125 MG TWICE DAILY (2250MG/DAY)
     Route: 048
     Dates: start: 20131209, end: 20140225
  6. ZOPICLONE [Concomitant]
     Indication: SEDATION
     Dosage: 7.5 MG, QD
     Route: 048
     Dates: end: 20140225
  7. METHADONE HYDROCHLORIDE [Concomitant]
     Indication: DRUG ABUSE
     Dosage: 80 ML, QD
     Route: 048
  8. VENTOLIN (ALBUTEROL SULFATE) [Concomitant]
  9. VENLAFAXINE HYDROCHLORIDE [Concomitant]
     Indication: DEPRESSION
     Dosage: 375 MG, QD
     Route: 048
  10. OLANZAPINE [Concomitant]
     Indication: PSYCHOTIC DISORDER
     Dosage: 20 MG, QD
     Route: 048

REACTIONS (1)
  - Pneumonia [Recovered/Resolved]
